APPROVED DRUG PRODUCT: CYCRIN
Active Ingredient: MEDROXYPROGESTERONE ACETATE
Strength: 10MG
Dosage Form/Route: TABLET;ORAL
Application: A089386 | Product #001
Applicant: ESI PHARMACAL
Approved: Sep 9, 1987 | RLD: No | RS: No | Type: DISCN